FAERS Safety Report 13090575 (Version 3)
Quarter: 2017Q3

REPORT INFORMATION
  Report Type: Spontaneous
  Country: RU (occurrence: RU)
  Receive Date: 20170105
  Receipt Date: 20170919
  Transmission Date: 20171127
  Serious: Yes (Other)
  Sender: FDA-Public Use
  Company Number: RU-BAUSCH-BL-2017-000239

PATIENT
  Sex: Female

DRUGS (2)
  1. TOCOPHEROL [Concomitant]
     Active Substance: TOCOPHEROL
     Indication: SARCOIDOSIS
     Dosage: MORNING AND EVENING
     Dates: start: 2003
  2. PENTOXIFYLLINE. [Suspect]
     Active Substance: PENTOXIFYLLINE
     Indication: SARCOIDOSIS
     Route: 048
     Dates: start: 2006, end: 2006

REACTIONS (3)
  - Nausea [Unknown]
  - Asthenia [Unknown]
  - Headache [Unknown]

NARRATIVE: CASE EVENT DATE: 2006
